FAERS Safety Report 25063824 (Version 1)
Quarter: 2025Q1

REPORT INFORMATION
  Report Type: Spontaneous
  Country: US (occurrence: US)
  Receive Date: 20250311
  Receipt Date: 20250311
  Transmission Date: 20250408
  Serious: Yes (Death, Life-Threatening)
  Sender: LABORATOIRES SERB
  Company Number: US-SERB S.A.S.-2172671

PATIENT
  Sex: Female

DRUGS (7)
  1. CROFAB [Suspect]
     Active Substance: AGKISTRODON PISCIVORUS IMMUNE FAB ANTIVENIN (OVINE)\CROTALUS ADAMANTEUS IMMUNE FAB ANTIVENIN (OVINE)
     Indication: Snake bite
  2. EPINEPHRINE [Suspect]
     Active Substance: EPINEPHRINE
  3. FENTANYL [Suspect]
     Active Substance: FENTANYL
  4. PROPOFOL [Suspect]
     Active Substance: PROPOFOL
  5. ALBUMIN (HUMAN) [Suspect]
     Active Substance: ALBUMIN HUMAN
  6. METHYLPREDNISOLONE [Suspect]
     Active Substance: METHYLPREDNISOLONE
  7. DIPHENHYDRAMINE [Suspect]
     Active Substance: DIPHENHYDRAMINE

REACTIONS (2)
  - Subarachnoid haemorrhage [Fatal]
  - Treatment failure [Unknown]
